FAERS Safety Report 11735363 (Version 1)
Quarter: 2015Q4

REPORT INFORMATION
  Report Type: Spontaneous
  Country: RU (occurrence: RU)
  Receive Date: 20151113
  Receipt Date: 20151113
  Transmission Date: 20160304
  Serious: Yes (Other)
  Sender: FDA-Public Use
  Company Number: RU-BAYER-2015-465639

PATIENT
  Age: 23 Year
  Sex: Female

DRUGS (1)
  1. YAZ [Suspect]
     Active Substance: DROSPIRENONE\ETHINYL ESTRADIOL
     Route: 048

REACTIONS (6)
  - Abnormal faeces [Not Recovered/Not Resolved]
  - Abdominal pain [None]
  - Abdominal pain [Not Recovered/Not Resolved]
  - Constipation [None]
  - Diarrhoea [None]
  - Poisoning [None]
